FAERS Safety Report 6511837-7 (Version None)
Quarter: 2009Q4

REPORT INFORMATION
  Report Type: 
  Country: None (occurrence: None)
  Receive Date: 20091222
  Receipt Date: 20091219
  Transmission Date: 20100525
  Serious: Yes (Hospitalization)
  Sender: FDA-Public Use
  Company Number: PHHO2009IT15806

PATIENT
  Sex: Male
  Weight: 89 kg

DRUGS (4)
  1. AFINITOR [Suspect]
     Indication: METASTATIC RENAL CELL CARCINOMA
     Dosage: 10 MG / DAY
     Route: 048
     Dates: start: 20091119, end: 20091203
  2. METFORAL [Concomitant]
     Indication: DIABETES MELLITUS
     Dosage: UNK
     Dates: start: 20091119, end: 20091207
  3. SOLOSA [Concomitant]
     Indication: DIABETES MELLITUS
     Dosage: UNK
     Dates: start: 20091203, end: 20091207
  4. ASPIRIN [Concomitant]
     Indication: ISCHAEMIC CARDIOMYOPATHY

REACTIONS (10)
  - ANAEMIA [None]
  - DYSURIA [None]
  - HYPERCREATININAEMIA [None]
  - HYPERGLYCAEMIA [None]
  - HYPONATRAEMIA [None]
  - LEUKOPENIA [None]
  - PYREXIA [None]
  - STOMATITIS [None]
  - THROMBOCYTOPENIA [None]
  - URINARY TRACT INFECTION [None]
